FAERS Safety Report 4786850-0 (Version None)
Quarter: 2005Q3

REPORT INFORMATION
  Report Type: 
  Country: None (occurrence: None)
  Receive Date: 20050930
  Receipt Date: 20050923
  Transmission Date: 20060218
  Serious: Yes (Hospitalization, Other)
  Sender: FDA-Public Use
  Company Number: 2005133791

PATIENT
  Age: 39 Year
  Sex: Female
  Weight: 56.246 kg

DRUGS (10)
  1. NEURONTIN [Suspect]
     Indication: ENCEPHALOPATHY
     Dosage: 3600 MG (1200 MG, 3 IN 1 D) ORAL
     Route: 048
  2. GABAPENTIN [Suspect]
     Indication: ENCEPHALOPATHY
     Dates: start: 20050701
  3. TEGRETOL [Concomitant]
  4. SINGULAIR ^MERCK^ (MONTELUKAST SODIUM) [Concomitant]
  5. SYNTHROID [Concomitant]
  6. LAMISIL [Concomitant]
  7. MS CONTIN [Concomitant]
  8. PHENERGAN ^AVENTIS PHARMA^ (PROMETHAZINE HYDROCHLORIDE) [Concomitant]
  9. ACYCLOVIR [Concomitant]
  10. LEVAQUIN [Concomitant]

REACTIONS (3)
  - ENCEPHALOPATHY [None]
  - HEADACHE [None]
  - PAIN [None]
